FAERS Safety Report 22108842 (Version 2)
Quarter: 2023Q2

REPORT INFORMATION
  Report Type: Spontaneous
  Country: JP (occurrence: JP)
  Receive Date: 20230317
  Receipt Date: 20230405
  Transmission Date: 20230721
  Serious: Yes (Hospitalization, Other)
  Sender: FDA-Public Use
  Company Number: JP-GLAXOSMITHKLINE-JP2023JPN039265

PATIENT

DRUGS (1)
  1. FLUTICASONE FUROATE\VILANTEROL TRIFENATATE [Suspect]
     Active Substance: FLUTICASONE FUROATE\VILANTEROL TRIFENATATE
     Indication: Asthma
     Dosage: MEDIUM DOSE

REACTIONS (8)
  - Asthma [Recovering/Resolving]
  - Herpes simplex bronchitis [Unknown]
  - Dyspnoea [Unknown]
  - Inflammation [Unknown]
  - Cough [Unknown]
  - Sputum increased [Unknown]
  - Productive cough [Unknown]
  - Respiratory disorder [Unknown]
